FAERS Safety Report 6687201-7 (Version None)
Quarter: 2010Q2

REPORT INFORMATION
  Report Type: 
  Country: None (occurrence: None)
  Receive Date: 20100419
  Receipt Date: 20100407
  Transmission Date: 20101027
  Serious: Yes (Other)
  Sender: FDA-Public Use
  Company Number: US-PFIZER INC-2010015695

PATIENT
  Sex: Female
  Weight: 104.31 kg

DRUGS (11)
  1. GABAPENTIN [Suspect]
     Indication: SPINAL COLUMN STENOSIS
     Dosage: 600 MG, 3X/DAY
     Dates: start: 20070101
  2. GABAPENTIN [Suspect]
     Indication: PAIN IN EXTREMITY
  3. NEURONTIN [Suspect]
     Indication: SPINAL COLUMN STENOSIS
     Dosage: 600 MG, 3X/DAY
     Route: 048
     Dates: start: 20080101, end: 20100101
  4. NEURONTIN [Suspect]
     Indication: PAIN IN EXTREMITY
  5. XANAX [Suspect]
     Indication: SEDATION
     Dosage: 1 MG, 1X/DAY
     Route: 048
  6. NIFEDIPINE [Concomitant]
     Indication: HYPERTENSION
     Dosage: 90 MG, 1X/DAY
     Dates: start: 20000101
  7. VALSARTAN [Concomitant]
     Indication: DIABETES MELLITUS
     Dosage: 40 MG, 1X/DAY
     Route: 048
     Dates: start: 19960101
  8. PAXIL [Concomitant]
     Indication: DEPRESSION
     Dosage: 20 MG, 2X/DAY
     Dates: start: 19980101
  9. ACETAMINOPHEN [Concomitant]
     Dosage: UNK
  10. LOMOTIL [Concomitant]
     Indication: FAECAL INCONTINENCE
     Dosage: UNK
     Dates: start: 20030101
  11. BUTALBITAL W/ ASPIRIN + CAFFEINE [Concomitant]
     Indication: MIGRAINE
     Dosage: 50/325/40 MG
     Dates: start: 19900101

REACTIONS (3)
  - DRUG INEFFECTIVE [None]
  - PHARYNGEAL OEDEMA [None]
  - TREMOR [None]
